FAERS Safety Report 25505447 (Version 1)
Quarter: 2025Q3

REPORT INFORMATION
  Report Type: Spontaneous
  Country: US (occurrence: None)
  Receive Date: 20250702
  Receipt Date: 20250702
  Transmission Date: 20251021
  Serious: Yes (Hospitalization, Disabling)
  Sender: FDA-CTU
  Company Number: None

PATIENT
  Age: 58 Year
  Sex: Male

DRUGS (2)
  1. REPATHA [Suspect]
     Active Substance: EVOLOCUMAB
     Indication: Blood cholesterol increased
     Route: 050
     Dates: start: 20250610, end: 20250610
  2. REPATHA [Suspect]
     Active Substance: EVOLOCUMAB
     Indication: Cardiac disorder

REACTIONS (8)
  - Tremor [None]
  - Feeling cold [None]
  - Ageusia [None]
  - Hypophagia [None]
  - Hypersomnia [None]
  - Renal failure [None]
  - Confusional state [None]
  - Dialysis [None]

NARRATIVE: CASE EVENT DATE: 20250610
